FAERS Safety Report 10152564 (Version 2)
Quarter: 2014Q2

REPORT INFORMATION
  Report Type: Spontaneous
  Country: JP (occurrence: JP)
  Receive Date: 20140505
  Receipt Date: 20140505
  Transmission Date: 20141212
  Serious: Yes (Other)
  Sender: FDA-Public Use
  Company Number: JP-TAKEDA-TCI2012A03249

PATIENT
  Age: 13 Year
  Sex: Male
  Weight: 38 kg

DRUGS (15)
  1. TAKEPRON OD TABLETS 15 [Suspect]
     Indication: GASTRIC ULCER
     Route: 048
     Dates: end: 20110905
  2. ROZEREM TABLETS 8MG [Suspect]
     Indication: PRODUCT USED FOR UNKNOWN INDICATION
     Dosage: 2 MG, UNK
     Route: 048
     Dates: start: 20110926
  3. SYMMETREL [Concomitant]
     Indication: HYPERTONIA
     Route: 048
  4. SYMMETREL [Concomitant]
     Route: 048
  5. SYMMETREL [Concomitant]
     Route: 048
     Dates: start: 2011
  6. DANTRIUM [Concomitant]
     Indication: HYPERTONIA
     Route: 048
     Dates: start: 20110829
  7. GASMOTIN [Concomitant]
     Indication: GASTROOESOPHAGEAL REFLUX DISEASE
     Route: 048
     Dates: start: 20110817
  8. GASMOTIN [Concomitant]
     Indication: GASTROOESOPHAGEAL REFLUX DISEASE
  9. MEILAX [Concomitant]
     Indication: PRODUCT USED FOR UNKNOWN INDICATION
     Route: 048
     Dates: start: 20110919
  10. MEILAX [Concomitant]
     Indication: PRODUCT USED FOR UNKNOWN INDICATION
  11. DAIKENTYUTO [Concomitant]
     Indication: PRODUCT USED FOR UNKNOWN INDICATION
     Route: 048
     Dates: start: 20110926
  12. DAIKENTYUTO [Concomitant]
     Indication: PRODUCT USED FOR UNKNOWN INDICATION
  13. GASTER [Concomitant]
     Indication: GASTRIC ULCER
     Route: 048
     Dates: start: 20110906
  14. GASTER [Concomitant]
     Route: 048
     Dates: start: 20110826
  15. ROZEREM TABLETS 8MG. [Suspect]
     Indication: PRODUCT USED FOR UNKNOWN INDICATION
     Route: 048
     Dates: start: 20110926

REACTIONS (3)
  - Tubulointerstitial nephritis [Recovered/Resolved]
  - Drug administered to patient of inappropriate age [Unknown]
  - Neuroleptic malignant syndrome [Recovered/Resolved]
